FAERS Safety Report 6202219-6 (Version None)
Quarter: 2009Q2

REPORT INFORMATION
  Report Type: 
  Country: None (occurrence: None)
  Receive Date: 20090526
  Receipt Date: 20090513
  Transmission Date: 20091009
  Serious: Yes (Hospitalization, Other)
  Sender: FDA-Public Use
  Company Number: US-ROCHE-613798

PATIENT
  Sex: Male
  Weight: 81.6 kg

DRUGS (5)
  1. PEGASYS [Suspect]
     Indication: HEPATITIS C
     Route: 058
     Dates: start: 20080601, end: 20090408
  2. COPEGUS [Suspect]
     Indication: HEPATITIS C
     Route: 048
     Dates: start: 20080601, end: 20090408
  3. COPEGUS [Suspect]
     Dosage: DOSE TAPERED, STOP DATE: 2009
     Route: 048
  4. INDOCIN [Concomitant]
  5. PERCOCET [Concomitant]

REACTIONS (5)
  - FALL [None]
  - HAEMOGLOBIN DECREASED [None]
  - LUNG INFECTION [None]
  - PYREXIA [None]
  - ROTATOR CUFF SYNDROME [None]
